FAERS Safety Report 13145437 (Version 3)
Quarter: 2017Q2

REPORT INFORMATION
  Report Type: Spontaneous
  Country: US (occurrence: US)
  Receive Date: 20170124
  Receipt Date: 20170428
  Transmission Date: 20170830
  Serious: No
  Sender: FDA-Public Use
  Company Number: US-PFIZER INC-2017030122

PATIENT
  Age: 59 Year
  Sex: Female
  Weight: 55.79 kg

DRUGS (2)
  1. GABAPENTIN. [Suspect]
     Active Substance: GABAPENTIN
     Dosage: 800 MG, 3X/DAY
  2. GABAPENTIN. [Suspect]
     Active Substance: GABAPENTIN
     Indication: FIBROMYALGIA
     Dosage: 300 MG, 3X/DAY
     Dates: start: 2015

REACTIONS (3)
  - Peripheral swelling [Unknown]
  - Drug ineffective for unapproved indication [Recovered/Resolved]
  - Drug tolerance [Unknown]

NARRATIVE: CASE EVENT DATE: 2015
